FAERS Safety Report 9549724 (Version 2)
Quarter: 2013Q3

REPORT INFORMATION
  Report Type: Spontaneous
  Country: US (occurrence: US)
  Receive Date: 20130924
  Receipt Date: 20130924
  Transmission Date: 20140515
  Serious: No
  Sender: FDA-Public Use
  Company Number: US-ALLERGAN-1313105US

PATIENT
  Age: 93 Year
  Sex: Male

DRUGS (7)
  1. LUMIGAN 0.01% [Suspect]
     Indication: GLAUCOMA
     Dosage: 2 GTT, QOD
     Route: 047
     Dates: start: 20130821
  2. SYNTHROID [Concomitant]
     Indication: PRODUCT USED FOR UNKNOWN INDICATION
     Dosage: UNK
  3. DARVON                             /00018802/ [Concomitant]
     Indication: HYPERTENSION
     Dosage: UNK
  4. ASA [Concomitant]
     Indication: PRODUCT USED FOR UNKNOWN INDICATION
     Dosage: UNK
  5. PETAL [Concomitant]
     Indication: ARTERIAL DISORDER
     Dosage: UNK
  6. ALAWAY [Concomitant]
     Indication: EYE PRURITUS
     Dosage: UNK
  7. REFRESH EYE DROP [Concomitant]
     Indication: DRY EYE
     Dosage: UNK

REACTIONS (2)
  - Dizziness [Recovered/Resolved]
  - Inappropriate schedule of drug administration [Unknown]
